FAERS Safety Report 5580528-1 (Version None)
Quarter: 2007Q4

REPORT INFORMATION
  Report Type: 
  Country: None (occurrence: None)
  Receive Date: 20071130
  Receipt Date: 20070711
  Transmission Date: 20080405
  Serious: No
  Sender: FDA-Public Use
  Company Number: US200707004256

PATIENT
  Age: 51 Year
  Sex: Female

DRUGS (8)
  1. BYETTA [Suspect]
     Indication: TYPE 2 DIABETES MELLITUS
     Dosage: SEE IMAGE
     Route: 058
     Dates: start: 20070322, end: 20070101
  2. BYETTA [Suspect]
     Indication: TYPE 2 DIABETES MELLITUS
     Dosage: SEE IMAGE
     Route: 058
     Dates: start: 20070101, end: 20070401
  3. BYETTA [Suspect]
     Indication: TYPE 2 DIABETES MELLITUS
     Dosage: SEE IMAGE
     Route: 058
     Dates: start: 20070101
  4. BYETTA [Suspect]
     Indication: TYPE 2 DIABETES MELLITUS
     Dosage: SEE IMAGE
     Route: 058
     Dates: start: 20070101
  5. METFORMIN HCL [Concomitant]
  6. DIOVAN (HYDROCHLOROTHIAZIDE, VALSARTAN) [Concomitant]
  7. LOVASTATIN [Concomitant]
  8. ASPIRIN /USA/ (ACETYLSALICYLIC ACID) [Concomitant]

REACTIONS (6)
  - ABDOMINAL PAIN UPPER [None]
  - ANOREXIA [None]
  - BLOOD GLUCOSE DECREASED [None]
  - CHEST PAIN [None]
  - DIARRHOEA [None]
  - FEELING ABNORMAL [None]
